FAERS Safety Report 6752644-X (Version None)
Quarter: 2010Q2

REPORT INFORMATION
  Report Type: 
  Country: None (occurrence: None)
  Receive Date: 20100602
  Receipt Date: 20070508
  Transmission Date: 20101027
  Serious: Yes (Other)
  Sender: FDA-Public Use
  Company Number: PHHY2007CL03558

PATIENT
  Age: 36 Year
  Sex: Male

DRUGS (1)
  1. MIACALCIN [Suspect]
     Dosage: UNK
     Route: 045

REACTIONS (1)
  - BRONCHITIS [None]
